FAERS Safety Report 20334564 (Version 2)
Quarter: 2022Q1

REPORT INFORMATION
  Report Type: Spontaneous
  Country: US (occurrence: US)
  Receive Date: 20220114
  Receipt Date: 20220222
  Transmission Date: 20220424
  Serious: Yes (Hospitalization, Other)
  Sender: FDA-Public Use
  Company Number: US-009507513-2201USA002326

PATIENT
  Age: 80 Year
  Sex: Female
  Weight: 53.288 kg

DRUGS (3)
  1. KEYTRUDA [Suspect]
     Active Substance: PEMBROLIZUMAB
     Indication: Uterine cancer
     Dosage: UNK
  2. LENVATINIB MESYLATE [Suspect]
     Active Substance: LENVATINIB MESYLATE
     Indication: Endometrial cancer
     Dosage: 8 MILLIGRAM, DAILY
     Route: 048
     Dates: start: 20210628, end: 20220106
  3. LENVATINIB MESYLATE [Suspect]
     Active Substance: LENVATINIB MESYLATE
     Indication: Uterine cancer
     Dosage: 8 MILLIGRAM, DAILY
     Route: 048
     Dates: start: 20220120

REACTIONS (9)
  - Deep vein thrombosis [Recovering/Resolving]
  - Stomatitis [Recovered/Resolved with Sequelae]
  - Stomatitis [Unknown]
  - Herpes zoster [Recovering/Resolving]
  - Herpes zoster [Recovering/Resolving]
  - Mucosal inflammation [Recovered/Resolved with Sequelae]
  - Mucosal inflammation [Unknown]
  - Rash pruritic [Recovered/Resolved]
  - Rash macular [Recovered/Resolved]

NARRATIVE: CASE EVENT DATE: 20211203
